FAERS Safety Report 7374394-1 (Version None)
Quarter: 2011Q1

REPORT INFORMATION
  Report Type: 
  Country: None (occurrence: None)
  Receive Date: 20110325
  Receipt Date: 20110314
  Transmission Date: 20110831
  Serious: Yes (Hospitalization)
  Sender: FDA-Public Use
  Company Number: US-SANOFI-AVENTIS-2011SA016087

PATIENT
  Age: 59 Year
  Sex: Female

DRUGS (3)
  1. INVESTIGATIONAL DRUG [Suspect]
     Indication: ENDOMETRIAL CANCER
     Dosage: TOTAL DOSE OF 21000 MG
     Route: 048
     Dates: start: 20101222, end: 20110213
  2. DALTEPARIN SODIUM [Suspect]
     Indication: PULMONARY EMBOLISM
     Route: 065
  3. LOVENOX [Suspect]
     Indication: PULMONARY EMBOLISM
     Route: 065

REACTIONS (1)
  - CELLULITIS [None]
